FAERS Safety Report 5604191-6 (Version None)
Quarter: 2008Q1

REPORT INFORMATION
  Report Type: 
  Country: None (occurrence: None)
  Receive Date: 20080128
  Receipt Date: 20080118
  Transmission Date: 20080703
  Serious: Yes (Hospitalization)
  Sender: FDA-Public Use
  Company Number: US-AVENTIS-200810673GDDC

PATIENT
  Age: 60 Year
  Sex: Female

DRUGS (11)
  1. LANTUS [Suspect]
     Dosage: DOSE QUANTITY: 74
     Route: 058
     Dates: start: 20070917
  2. OPTICLIK (INSULIN INJECTION PEN) [Suspect]
     Route: 058
  3. LIPITOR [Concomitant]
     Route: 048
     Dates: start: 20070909
  4. SPIRIVA [Concomitant]
     Indication: CHRONIC OBSTRUCTIVE PULMONARY DISEASE
     Dates: start: 20070821
  5. FUROSEMIDE [Concomitant]
     Route: 048
     Dates: start: 19950101
  6. PROMETHASIN [Concomitant]
     Indication: NAUSEA
     Route: 048
     Dates: start: 20060101
  7. ALTOPREV [Concomitant]
     Route: 048
     Dates: start: 19990101, end: 20070905
  8. DIOVAN [Concomitant]
     Indication: HYPERTENSION
     Dates: start: 19990101
  9. LEVOTHYROXINE SODIUM [Concomitant]
     Indication: HYPOTHYROIDISM
     Route: 048
     Dates: start: 19940101
  10. PLAVIX [Concomitant]
     Indication: PROPHYLAXIS
     Route: 048
     Dates: start: 19950101
  11. METOPROLOL TARTRATE [Concomitant]
     Indication: HYPERTENSION
     Route: 048
     Dates: start: 19980101

REACTIONS (1)
  - FALL [None]
